FAERS Safety Report 6700385-7 (Version None)
Quarter: 2010Q2

REPORT INFORMATION
  Report Type: 
  Country: None (occurrence: None)
  Receive Date: 20100428
  Receipt Date: 20100414
  Transmission Date: 20101027
  Serious: Yes (Other)
  Sender: FDA-Public Use
  Company Number: US-ROCHE-695024

PATIENT
  Sex: Male
  Weight: 25.4 kg

DRUGS (4)
  1. AVASTIN [Suspect]
     Indication: GLIOMA
     Route: 042
     Dates: start: 20070801, end: 20081001
  2. AVASTIN [Suspect]
     Route: 042
     Dates: start: 20090606, end: 20100311
  3. IRINOTECAN HCL [Concomitant]
     Dates: start: 20070801, end: 20091001
  4. SYNTHROID [Concomitant]
     Dosage: FREQUENCY: EVERYDAY
     Route: 048
     Dates: end: 20091201

REACTIONS (1)
  - SYNOVITIS [None]
